FAERS Safety Report 7035202-1 (Version None)
Quarter: 2010Q4

REPORT INFORMATION
  Report Type: 
  Country: None (occurrence: None)
  Receive Date: 20101008
  Receipt Date: 20100929
  Transmission Date: 20110411
  Serious: Yes (Hospitalization)
  Sender: FDA-Public Use
  Company Number: DE-ROCHE-725549

PATIENT
  Sex: Male

DRUGS (7)
  1. TOCILIZUMAB [Suspect]
     Indication: RHEUMATOID ARTHRITIS
     Route: 042
     Dates: start: 20060809
  2. TOCILIZUMAB [Suspect]
     Route: 042
     Dates: start: 20100414
  3. TOCILIZUMAB [Suspect]
     Route: 042
     Dates: start: 20100512
  4. TOCILIZUMAB [Suspect]
     Dosage: LAST DOSE PRIOR TO SAE; 09 JUNE 2010. DRUG DISCONTINUED.
     Route: 042
     Dates: start: 20100609, end: 20100609
  5. BLINDED TOCILIZUMAB [Suspect]
     Indication: RHEUMATOID ARTHRITIS
     Dosage: PATIENT COMPLETED STUDY WA17822
     Route: 042
  6. MTX [Concomitant]
     Dates: start: 20050217
  7. FOLIC ACID [Concomitant]
     Dates: start: 20050217

REACTIONS (1)
  - PROSTATE CANCER [None]
